FAERS Safety Report 4777770-6 (Version None)
Quarter: 2005Q3

REPORT INFORMATION
  Report Type: 
  Country: None (occurrence: None)
  Receive Date: 20050922
  Receipt Date: 20050912
  Transmission Date: 20060218
  Serious: Yes (Other)
  Sender: FDA-Public Use
  Company Number: 005612

PATIENT
  Age: 62 Year
  Sex: Female
  Weight: 83.9 kg

DRUGS (4)
  1. TRIAMTERENE AND HYDROCHLOROTHIAZIDE [Suspect]
     Indication: HYPERTENSION
     Dosage: 1.0 TABLET, QD, ORAL
     Route: 048
  2. ESTRATEST H.S. [Concomitant]
  3. LEVOTHYROXINE SODIUM [Concomitant]
  4. PREVACID [Concomitant]

REACTIONS (3)
  - IMMUNE SYSTEM DISORDER [None]
  - MUSCULAR WEAKNESS [None]
  - MYOSITIS [None]
